APPROVED DRUG PRODUCT: ZETIA
Active Ingredient: EZETIMIBE
Strength: 10MG
Dosage Form/Route: TABLET;ORAL
Application: N021445 | Product #001 | TE Code: AB
Applicant: ORGANON LLC A SUB OF ORGANON AND CO
Approved: Oct 25, 2002 | RLD: Yes | RS: Yes | Type: RX

PATENTS:
Patent 7612058 | Expires: Oct 30, 2025
Patent 7612058 | Expires: Oct 30, 2025
Patent 7612058*PED | Expires: Apr 30, 2026